FAERS Safety Report 12744486 (Version 1)
Quarter: 2016Q3

REPORT INFORMATION
  Report Type: Spontaneous
  Country: US (occurrence: US)
  Receive Date: 20160914
  Receipt Date: 20160914
  Transmission Date: 20161109
  Serious: No
  Sender: FDA-Public Use
  Company Number: US-JAZZ-2016-US-009372

PATIENT
  Sex: Female

DRUGS (29)
  1. FLONASE ALLERGY RLF [Concomitant]
  2. ESTRACE [Concomitant]
     Active Substance: ESTRADIOL
  3. ACETAMINOPHEN. [Concomitant]
     Active Substance: ACETAMINOPHEN
  4. LIMBREL [Concomitant]
     Active Substance: FLAVOCOXID
  5. TRICOR [Concomitant]
     Active Substance: FENOFIBRATE
  6. TURMERIC [Concomitant]
     Active Substance: TURMERIC
  7. VITAMIN B12 [Concomitant]
     Active Substance: CYANOCOBALAMIN
  8. VITAMIN C TR [Concomitant]
  9. XYREM [Suspect]
     Active Substance: SODIUM OXYBATE
     Dosage: 3 G, BID
     Route: 048
     Dates: start: 201210, end: 2015
  10. BECONASE AQ [Concomitant]
     Active Substance: BECLOMETHASONE DIPROPIONATE MONOHYDRATE
  11. CITRACAL [Concomitant]
     Active Substance: CALCIUM CITRATE
  12. CYMBALTA [Concomitant]
     Active Substance: DULOXETINE HYDROCHLORIDE
  13. OMEGA 3 [Concomitant]
     Active Substance: OMEGA-3 FATTY ACIDS
  14. AZELASTINE HCL [Concomitant]
     Active Substance: AZELASTINE HYDROCHLORIDE
  15. MACRODANTIN [Concomitant]
     Active Substance: NITROFURANTOIN
  16. XYREM [Suspect]
     Active Substance: SODIUM OXYBATE
     Indication: FIBROMYALGIA
     Dosage: 2.25 G, BID
     Route: 048
     Dates: start: 200904, end: 200904
  17. VITAMIN D [Concomitant]
     Active Substance: CHOLECALCIFEROL
  18. XYREM [Suspect]
     Active Substance: SODIUM OXYBATE
     Dosage: 3 G, BID
     Route: 048
     Dates: start: 201601
  19. PROBIOTIC COMPLEX [Concomitant]
  20. XYREM [Suspect]
     Active Substance: SODIUM OXYBATE
     Dosage: DOSE ADJUSTMENTS
     Route: 048
  21. AMOXI CLAV ER [Concomitant]
  22. GAS RELIEF [Concomitant]
     Active Substance: DIMETHICONE
  23. MAGNESIUM [Concomitant]
     Active Substance: MAGNESIUM
  24. PLAQUENIL [Concomitant]
     Active Substance: HYDROXYCHLOROQUINE SULFATE
  25. RANITIDINE. [Concomitant]
     Active Substance: RANITIDINE
  26. VITAMIN D2 [Concomitant]
     Active Substance: ERGOCALCIFEROL
  27. GLUCOSAMINE [Concomitant]
     Active Substance: GLUCOSAMINE
  28. MULTIVITAMINS [Concomitant]
     Active Substance: VITAMINS
  29. ZINC CHELATE [Concomitant]

REACTIONS (1)
  - Sinusitis [Unknown]
